FAERS Safety Report 7787536-0 (Version None)
Quarter: 2011Q3

REPORT INFORMATION
  Report Type: 
  Country: None (occurrence: None)
  Receive Date: 20110929
  Receipt Date: 20110923
  Transmission Date: 20111222
  Serious: Yes (Other)
  Sender: FDA-Public Use
  Company Number: US-AMGEN-USASP2011049465

PATIENT
  Age: 45 Year
  Sex: Male

DRUGS (3)
  1. ENBREL [Suspect]
     Indication: PSORIATIC ARTHROPATHY
  2. TREXALL [Concomitant]
     Dosage: 7 MG, QWK
     Dates: start: 20060101
  3. ENBREL [Suspect]
     Indication: PSORIASIS
     Dosage: 50 MG, QWK
     Dates: start: 20080101

REACTIONS (7)
  - SKIN DISCOLOURATION [None]
  - FATIGUE [None]
  - COUGH [None]
  - HAEMOPTYSIS [None]
  - DYSPNOEA [None]
  - NIGHT SWEATS [None]
  - SKIN SWELLING [None]
